FAERS Safety Report 9893258 (Version 1)
Quarter: 2014Q1

REPORT INFORMATION
  Report Type: Report from Study
  Country: US (occurrence: US)
  Receive Date: 20140213
  Receipt Date: 20140213
  Transmission Date: 20141002
  Serious: Yes (Other)
  Sender: FDA-Public Use
  Company Number: US-ROCHE-1320926

PATIENT
  Age: 59 Year
  Sex: Female

DRUGS (10)
  1. AVASTIN [Suspect]
     Indication: OVARIAN CANCER
     Route: 065
     Dates: start: 20110929
  2. CYTOXAN [Concomitant]
     Dosage: DAILY BASIS
     Route: 048
     Dates: start: 20110929
  3. GEMZAR [Concomitant]
     Route: 065
     Dates: start: 20120103
  4. LASIX [Concomitant]
  5. DECADRON [Concomitant]
     Route: 065
  6. PHENERGAN [Concomitant]
  7. ZOFRAN [Concomitant]
  8. PEPCID [Concomitant]
     Route: 065
  9. TAXOL [Concomitant]
     Route: 065
     Dates: start: 20101216
  10. BETAPACE [Concomitant]

REACTIONS (9)
  - Metastases to liver [Unknown]
  - Oedema [Unknown]
  - Local swelling [Unknown]
  - Ovarian disorder [Unknown]
  - Blister [Unknown]
  - Dry skin [Unknown]
  - Carbohydrate antigen 125 increased [Unknown]
  - Off label use [Unknown]
  - Skin exfoliation [Unknown]
